FAERS Safety Report 7284938-6 (Version None)
Quarter: 2011Q1

REPORT INFORMATION
  Report Type: 
  Country: None (occurrence: None)
  Receive Date: 20110210
  Receipt Date: 20110202
  Transmission Date: 20110831
  Serious: Yes (Other)
  Sender: FDA-Public Use
  Company Number: BR-BRISTOL-MYERS SQUIBB COMPANY-15532369

PATIENT
  Sex: Female

DRUGS (2)
  1. CLONAZEPAM [Concomitant]
  2. ABILIFY [Suspect]
     Indication: SCHIZOPHRENIA

REACTIONS (2)
  - SCHIZOPHRENIA [None]
  - ANXIETY [None]
